FAERS Safety Report 11154494 (Version 2)
Quarter: 2017Q2

REPORT INFORMATION
  Report Type: Spontaneous
  Country: US (occurrence: US)
  Receive Date: 20150602
  Receipt Date: 20170602
  Transmission Date: 20170829
  Serious: No
  Sender: FDA-Public Use
  Company Number: US-NOVEN PHARMACEUTICALS, INC.-15US013234

PATIENT

DRUGS (2)
  1. DAYTRANA [Suspect]
     Active Substance: METHYLPHENIDATE
     Indication: ATTENTION DEFICIT/HYPERACTIVITY DISORDER
     Dosage: 20 MG, UNKNOWN
     Route: 062
     Dates: start: 201412
  2. DAYTRANA [Suspect]
     Active Substance: METHYLPHENIDATE
     Dosage: CUTTING 20 MG PATCH INTO HALF, UNKNOWN
     Route: 062

REACTIONS (6)
  - Wrong technique in product usage process [Unknown]
  - Incorrect product storage [Unknown]
  - Treatment noncompliance [Unknown]
  - Drug administration error [Unknown]
  - Product quality issue [Unknown]
  - Application site erythema [Recovered/Resolved]

NARRATIVE: CASE EVENT DATE: 201412
